FAERS Safety Report 24235948 (Version 1)
Quarter: 2024Q3

REPORT INFORMATION
  Report Type: Spontaneous
  Country: US (occurrence: US)
  Receive Date: 20240822
  Receipt Date: 20240822
  Transmission Date: 20241016
  Serious: No
  Sender: ENDO
  Company Number: ENDB23-03816

PATIENT
  Sex: Male

DRUGS (6)
  1. TESTOPEL [Suspect]
     Active Substance: TESTOSTERONE
     Indication: Hypogonadism
     Dosage: 75 MILLIGRAM, UNKNOWN (IMPLANT 6 PELLETS, DURATION ONE)
     Route: 058
     Dates: start: 20230811
  2. TESTOPEL [Suspect]
     Active Substance: TESTOSTERONE
     Indication: Hypogonadism
     Dosage: 75 MILLIGRAM, UNKNOWN (IMPLANT 6 PELLETS, DURATION ONE)
     Route: 058
     Dates: start: 20230811
  3. TESTOPEL [Suspect]
     Active Substance: TESTOSTERONE
     Indication: Hypogonadism
     Dosage: 75 MILLIGRAM, UNKNOWN (IMPLANT 6 PELLETS, DURATION ONE)
     Route: 058
     Dates: start: 20230811
  4. TESTOPEL [Suspect]
     Active Substance: TESTOSTERONE
     Dosage: UNK UNKNOWN, UNKNOWN
     Route: 058
     Dates: start: 201611
  5. TESTOPEL [Suspect]
     Active Substance: TESTOSTERONE
     Dosage: UNK UNKNOWN, UNKNOWN
     Route: 058
     Dates: start: 201611
  6. TESTOPEL [Suspect]
     Active Substance: TESTOSTERONE
     Dosage: UNK UNKNOWN, UNKNOWN
     Route: 058
     Dates: start: 201611

REACTIONS (3)
  - Erythema [Recovered/Resolved]
  - Implant site pain [Not Recovered/Not Resolved]
  - Implant site inflammation [Not Recovered/Not Resolved]

NARRATIVE: CASE EVENT DATE: 20230101
